FAERS Safety Report 4710873-0 (Version None)
Quarter: 2005Q3

REPORT INFORMATION
  Report Type: 
  Country: None (occurrence: None)
  Receive Date: 20050711
  Receipt Date: 20050623
  Transmission Date: 20060218
  Serious: Yes (Death)
  Sender: FDA-Public Use
  Company Number: NL-GLAXOSMITHKLINE-B0386131A

PATIENT
  Age: 83 Year
  Sex: Female

DRUGS (7)
  1. ROSIGLITAZONE MALEATE [Suspect]
     Dosage: 8MG PER DAY
     Route: 065
     Dates: start: 20050615, end: 20050619
  2. INTERMEDIATE/LONG-ACTING INSULIN [Concomitant]
     Dates: start: 20000101
  3. ANTI-RHEUMATICS [Concomitant]
  4. CALCIUM CARBONATE [Concomitant]
     Dates: start: 20030101
  5. PREDNISOLONE [Concomitant]
     Dosage: 20MG PER DAY
  6. RABEPRAZOLE SODIUM [Concomitant]
     Dosage: 20MG PER DAY
  7. ALENDRONIC ACID [Concomitant]

REACTIONS (6)
  - ADVERSE EVENT [None]
  - CHEST DISCOMFORT [None]
  - DEATH [None]
  - DYSPNOEA [None]
  - MALAISE [None]
  - PNEUMONIA [None]
